APPROVED DRUG PRODUCT: OZOBAX
Active Ingredient: BACLOFEN
Strength: 5MG/5ML
Dosage Form/Route: SOLUTION;ORAL
Application: N208193 | Product #001
Applicant: METACEL PHARMACEUTICALS LLC
Approved: Sep 18, 2019 | RLD: Yes | RS: No | Type: DISCN

PATENTS:
Patent 10610502 | Expires: Aug 30, 2039